FAERS Safety Report 19834773 (Version 5)
Quarter: 2025Q4

REPORT INFORMATION
  Report Type: Report from Study
  Country: JP (occurrence: JP)
  Receive Date: 20210915
  Receipt Date: 20251121
  Transmission Date: 20260117
  Serious: Yes (Other)
  Sender: RECORDATI
  Company Number: JP-ORPHANEU-2021003748

PATIENT
  Age: 0 Year
  Sex: Male
  Weight: 2.1 kg

DRUGS (30)
  1. CARBAGLU [Suspect]
     Active Substance: CARGLUMIC ACID
     Indication: Methylmalonic acidaemia
     Dosage: 400 MG, QID (AFTER MEALS: MORNING, NOON, EVENING, NIGHT)
     Dates: start: 20201008, end: 2020
  2. CARBAGLU [Suspect]
     Active Substance: CARGLUMIC ACID
     Dosage: 400 MG, QID (AFTER MEALS: MORNING, NOON, EVENING, NIGHT)
     Dates: start: 20201119, end: 2020
  3. CARBAGLU [Suspect]
     Active Substance: CARGLUMIC ACID
     Dosage: 200 MG, QID (AFTER MEALS: MORNING, NOON, EVENING, NIGHT)
     Route: 048
     Dates: start: 20201203
  4. SODIUM BENZOATE [Suspect]
     Active Substance: SODIUM BENZOATE
     Indication: Methylmalonic acidaemia
     Dosage: 13MG/KG/HOUR
  5. SODIUM BENZOATE [Suspect]
     Active Substance: SODIUM BENZOATE
     Indication: Disease complication
     Dosage: 7.2ML/24-HOUR CONTINUOUS INFUSION/DAILY
     Dates: start: 20201005, end: 20201009
  6. LEVOCARNITINE [Concomitant]
     Active Substance: LEVOCARNITINE
     Indication: Methylmalonic acidaemia
     Dosage: 200 MG/KG/DAY
  7. LEVOCARNITINE [Concomitant]
     Active Substance: LEVOCARNITINE
     Dosage: 150 MG/KG/DAY
  8. LEVOCARNITINE [Concomitant]
     Active Substance: LEVOCARNITINE
     Dosage: 2.4ML/T.I.D./DAILY (1000MG/5ML INJECTION)
     Dates: start: 20201005, end: 20201014
  9. LEVOCARNITINE [Concomitant]
     Active Substance: LEVOCARNITINE
     Dosage: 900MG/T.I.D./DAILY
     Dates: start: 20210703, end: 20210705
  10. VITAMIN B12 [Concomitant]
     Active Substance: CYANOCOBALAMIN
     Indication: Methylmalonic acidaemia
     Dosage: UNK
  11. ARGININE [Concomitant]
     Active Substance: ARGININE
     Indication: Methylmalonic acidaemia
     Dosage: 17MG/KG/HOUR
  12. ARGININE [Concomitant]
     Active Substance: ARGININE
     Indication: Disease complication
     Dosage: 4.8ML/24-HOUR CONTINUOUS INFUSION/DAILY
     Dates: start: 20201005, end: 20201011
  13. VITAMIN B1 [Concomitant]
     Active Substance: THIAMINE HYDROCHLORIDE
     Indication: Product used for unknown indication
  14. VITAMIN B6 [Concomitant]
     Active Substance: PYRIDOXINE HYDROCHLORIDE
     Indication: Product used for unknown indication
  15. VITAMIN C [Concomitant]
     Active Substance: ASCORBIC ACID
     Indication: Product used for unknown indication
  16. VITAMIN E [Concomitant]
     Active Substance: .ALPHA.-TOCOPHEROL
     Indication: Product used for unknown indication
  17. Vitamin h [Concomitant]
     Indication: Product used for unknown indication
     Dosage: UNK
  18. LACTULOSE [Concomitant]
     Active Substance: LACTULOSE
     Indication: Product used for unknown indication
     Dosage: UNK
  19. METRONIDAZOLE [Concomitant]
     Active Substance: METRONIDAZOLE
     Indication: Product used for unknown indication
     Dosage: UNK
  20. AMPICILLIN [Concomitant]
     Active Substance: AMPICILLIN
     Indication: Infection prophylaxis
     Dosage: UNK
     Dates: start: 20201007, end: 20201014
  21. MEYLON [Concomitant]
     Active Substance: SODIUM BICARBONATE
     Indication: Disease complication
     Dosage: 8 MILLILITER, BID (7 PERCENT, INJECTION)
     Dates: start: 20201005, end: 20201014
  22. CALCIUM GLUCONATE [Concomitant]
     Active Substance: CALCIUM GLUCONATE
     Indication: Disease complication
     Dosage: 3ML/24-HOUR CONTINUOUS INFUSION/DAILY (1.95MEQ/5ML, INJECTION)
     Dates: start: 20201005, end: 20201012
  23. CYANOCOBALAMIN\PYRIDOXINE HYDROCHLORIDE\THIAMINE [Concomitant]
     Active Substance: CYANOCOBALAMIN\PYRIDOXINE HYDROCHLORIDE\THIAMINE
     Indication: Product used for unknown indication
     Dosage: 1 VIAL/DAILY (INJECTION)
     Dates: start: 20201005, end: 20201022
  24. INTRALIPID [Concomitant]
     Active Substance: EGG PHOSPHOLIPIDS\GLYCERIN\SOYBEAN OIL
     Indication: Product used for unknown indication
     Dosage: 12ML/24-HOUR CONTINUOUS INFUSION/DAILY (20% SOLUTION)
     Dates: start: 20201005, end: 20201014
  25. HUMULIN R [Concomitant]
     Active Substance: INSULIN HUMAN
     Indication: Disease complication
     Dosage: 26IU/24-HOUR CONTINUOUS INFUSION/DAILY (100 UNITS/ML INJECTION)
     Dates: start: 20201005, end: 20201012
  26. Cinal [Concomitant]
     Indication: Product used for unknown indication
     Dosage: 1.3G/T.I.D./DAILY (COMBINATION GRANULES)
     Route: 048
     Dates: start: 20201005, end: 20201111
  27. TOCOPHEROL ACETATE [Concomitant]
     Active Substance: .ALPHA.-TOCOPHEROL ACETATE
     Indication: Product used for unknown indication
     Dosage: 1.3G/T.I.D./DAILY (GRANULES 20%)
     Route: 048
     Dates: start: 20201005, end: 20201111
  28. OK-432 [Concomitant]
     Active Substance: OK-432
     Indication: Bacterial infection
     Dosage: 360 MG, TID (INJECTION)
     Dates: start: 20201007, end: 20201014
  29. CLAFORAN [Concomitant]
     Active Substance: CEFOTAXIME SODIUM
     Indication: Bacterial infection
     Dosage: 360 MG, TID (INJECTION)
     Dates: start: 20201007, end: 20201014
  30. CLAFORAN [Concomitant]
     Active Substance: CEFOTAXIME SODIUM
     Dosage: 360 MG, TID (INJECTION)
     Dates: start: 20201017, end: 20201020

REACTIONS (8)
  - Rhabdomyolysis [Recovered/Resolved]
  - Iron deficiency anaemia [Recovered/Resolved]
  - Upper respiratory tract infection [Recovered/Resolved]
  - Immunisation reaction [Recovering/Resolving]
  - Viral upper respiratory tract infection [Recovered/Resolved]
  - Food allergy [Not Recovered/Not Resolved]
  - Upper respiratory tract infection [Recovered/Resolved]
  - Anaemia [Recovered/Resolved]

NARRATIVE: CASE EVENT DATE: 20201008
